FAERS Safety Report 4296003-0 (Version None)
Quarter: 2004Q1

REPORT INFORMATION
  Report Type: 
  Country: None (occurrence: None)
  Receive Date: 20040212
  Receipt Date: 20040205
  Transmission Date: 20041129
  Serious: Yes (Hospitalization)
  Sender: FDA-Public Use
  Company Number: FR_040103465

PATIENT
  Age: 64 Year
  Sex: Male

DRUGS (4)
  1. PROZAC [Suspect]
     Indication: DEPRESSION
     Dosage: 20 MG/DAY
     Dates: start: 19970101
  2. ADVIL [Concomitant]
  3. XATRAL (ALFUZOSIN) [Concomitant]
  4. TANAKAN (GINKGO BILOBA EXTRACT) [Concomitant]

REACTIONS (3)
  - PERIPHERAL MOTOR NEUROPATHY [None]
  - PERIPHERAL SENSORY NEUROPATHY [None]
  - SCIATICA [None]
